FAERS Safety Report 19479584 (Version 3)
Quarter: 2021Q3

REPORT INFORMATION
  Report Type: Report from Study
  Country: US (occurrence: US)
  Receive Date: 20210630
  Receipt Date: 20210818
  Transmission Date: 20211014
  Serious: Yes (Hospitalization)
  Sender: FDA-Public Use
  Company Number: US-BRISTOL-MYERS SQUIBB COMPANY-BMS-2021-061864

PATIENT
  Age: 40 Year
  Sex: Male
  Weight: 77.5 kg

DRUGS (6)
  1. NIVOLUMAB [Suspect]
     Active Substance: NIVOLUMAB
     Indication: OROPHARYNGEAL CANCER
     Dosage: 240 MILLIGRAM, Q2WK
     Route: 042
     Dates: start: 20210323, end: 20210504
  2. PACLITAXEL. [Suspect]
     Active Substance: PACLITAXEL
     Indication: OROPHARYNGEAL CANCER
     Dosage: 30 ABSENT, QWK
     Route: 042
     Dates: start: 20210330, end: 20210511
  3. LIDOCAINE. [Concomitant]
     Active Substance: LIDOCAINE
     Indication: PAIN
     Dosage: 2% MUCOSAL SOLUTION ? SWISH 10 ML? EVERY 4?6 HOURS AS NEEDED
     Route: 065
  4. CHOLECALCIFEROL [Concomitant]
     Active Substance: CHOLECALCIFEROL
     Indication: PRODUCT USED FOR UNKNOWN INDICATION
     Dosage: 2,000 UNIT TABLET 4,000 UNITS QD
     Route: 048
  5. CARBOPLATIN. [Suspect]
     Active Substance: CARBOPLATIN
     Indication: OROPHARYNGEAL CANCER
     Dosage: AUC=1 WEEKLY
     Route: 042
     Dates: start: 20210330, end: 20210511
  6. OMEPRAZOLE. [Concomitant]
     Active Substance: OMEPRAZOLE
     Indication: PRODUCT USED FOR UNKNOWN INDICATION
     Dosage: 20 MG DELAYED RELEASE TABLET TAKE 1 TABLET TWO TIMES DAILY
     Route: 065

REACTIONS (5)
  - Vomiting [Unknown]
  - Nystagmus [Recovering/Resolving]
  - Peripheral motor neuropathy [Recovering/Resolving]
  - Nausea [Unknown]
  - Dehydration [Unknown]

NARRATIVE: CASE EVENT DATE: 20210615
